FAERS Safety Report 21766450 (Version 1)
Quarter: 2022Q4

REPORT INFORMATION
  Report Type: Spontaneous
  Country: JP (occurrence: JP)
  Receive Date: 20221222
  Receipt Date: 20221222
  Transmission Date: 20230112
  Serious: Yes (Hospitalization, Other)
  Sender: FDA-Public Use
  Company Number: JP-MYE-2022M1140557AA

PATIENT
  Age: 61 Year
  Sex: Male
  Weight: 44.5 kg

DRUGS (9)
  1. ACETAMINOPHEN [Suspect]
     Active Substance: ACETAMINOPHEN
     Indication: Procedural pain
     Dosage: 1.5 GRAM PER DAY
     Route: 065
  2. MIROGABALIN [Concomitant]
     Active Substance: MIROGABALIN
     Indication: Procedural pain
     Dosage: 5 MILLIGRAM PER DAY
     Route: 065
  3. MIROGABALIN [Concomitant]
     Active Substance: MIROGABALIN
     Dosage: 10 MILLIGRAM PER DAY
     Route: 065
  4. TRAMADOL [Concomitant]
     Active Substance: TRAMADOL
     Indication: Procedural pain
     Dosage: 75 MILLIGRAM PER DAY
     Route: 065
  5. AZOSEMIDE [Concomitant]
     Active Substance: AZOSEMIDE
     Indication: Product used for unknown indication
     Dosage: 60 MILLIGRAM PER DAY
     Route: 065
  6. ZINC ACETATE [Concomitant]
     Active Substance: ZINC ACETATE
     Indication: Product used for unknown indication
     Dosage: 50 MILLIGRAM PER DAY
     Route: 065
  7. LANSOPRAZOLE [Concomitant]
     Active Substance: LANSOPRAZOLE
     Indication: Product used for unknown indication
     Dosage: 15 MILLIGRAM PER DAY
     Route: 065
  8. CEFEPIME HYDROCHLORIDE [Concomitant]
     Active Substance: CEFEPIME HYDROCHLORIDE
     Indication: Gas gangrene
     Dosage: 2 GRAM PER DAY
     Route: 065
  9. METRONIDAZOLE [Concomitant]
     Active Substance: METRONIDAZOLE
     Indication: Gas gangrene
     Dosage: 1500 MILLIGRAM PER DAY
     Route: 065

REACTIONS (1)
  - Altered state of consciousness [Unknown]
